FAERS Safety Report 6241655-9 (Version None)
Quarter: 2009Q2

REPORT INFORMATION
  Report Type: 
  Country: None (occurrence: None)
  Receive Date: 20090623
  Receipt Date: 20070621
  Transmission Date: 20091009
  Serious: Yes (Death)
  Sender: FDA-Public Use
  Company Number: IT-ROCHE-637178

PATIENT

DRUGS (4)
  1. VALGANCICLOVIR HCL [Suspect]
     Dosage: INDUCTION THERAPY. TWO WEEKS DURATION
     Route: 048
  2. FLUOROQUINOLONE [Concomitant]
     Route: 048
  3. ACYCLOVIR [Concomitant]
     Dosage: ROUTE INTRAVENOUS OR ORAL
     Route: 065
  4. PENTAMIDINE ISETHIONATE [Concomitant]
     Indication: INFECTION PROPHYLAXIS

REACTIONS (1)
  - BRONCHOPULMONARY ASPERGILLOSIS [None]
